FAERS Safety Report 23457685 (Version 1)
Quarter: 2024Q1

REPORT INFORMATION
  Report Type: Spontaneous
  Country: US (occurrence: None)
  Receive Date: 20240129
  Receipt Date: 20240129
  Transmission Date: 20240409
  Serious: Yes (Disabling)
  Sender: FDA-Public Use
  Company Number: None

PATIENT
  Age: 60 Year
  Sex: Female
  Weight: 79.38 kg

DRUGS (10)
  1. REXULTI [Suspect]
     Active Substance: BREXPIPRAZOLE
  2. OZEMPIC [Suspect]
     Active Substance: SEMAGLUTIDE
  3. ADDERALL [Concomitant]
     Active Substance: AMPHETAMINE ASPARTATE\AMPHETAMINE SULFATE\DEXTROAMPHETAMINE SACCHARATE\DEXTROAMPHETAMINE SULFATE
  4. FARXIGA [Concomitant]
     Active Substance: DAPAGLIFLOZIN PROPANEDIOL
  5. Linsopril [Concomitant]
  6. CLONAZEPAM [Concomitant]
     Active Substance: CLONAZEPAM
  7. PRISTIQ EXTENDED-RELEASE [Concomitant]
     Active Substance: DESVENLAFAXINE SUCCINATE
  8. GLIPIZIDE [Concomitant]
     Active Substance: GLIPIZIDE
  9. Astrovin [Concomitant]
  10. Multi Vitamin (Equate) [Concomitant]

REACTIONS (7)
  - Somnolence [None]
  - Loss of consciousness [None]
  - Blood glucose decreased [None]
  - Urticaria [None]
  - Perioral dermatitis [None]
  - Pruritus [None]
  - Weight increased [None]

NARRATIVE: CASE EVENT DATE: 20240101
